FAERS Safety Report 11211737 (Version 1)
Quarter: 2015Q2

REPORT INFORMATION
  Report Type: Spontaneous
  Country: PT (occurrence: PT)
  Receive Date: 20150623
  Receipt Date: 20150623
  Transmission Date: 20150821
  Serious: Yes (Hospitalization, Other)
  Sender: FDA-Public Use
  Company Number: PT-APOTEX-2015AP010164

PATIENT

DRUGS (9)
  1. PAXIL [Suspect]
     Active Substance: PAROXETINE HYDROCHLORIDE
     Indication: DEPRESSION
     Dosage: UNK
     Route: 065
     Dates: start: 200506, end: 20050731
  2. AMIZAL [Concomitant]
     Indication: PRODUCT USED FOR UNKNOWN INDICATION
     Dosage: 45 MG, UNK
     Route: 065
     Dates: start: 2005
  3. SEMI-DAONIL [Concomitant]
     Indication: PRODUCT USED FOR UNKNOWN INDICATION
     Route: 065
  4. HEPTAMINOL HYDROCHLORIDE [Concomitant]
     Active Substance: HEPTAMINOL HYDROCHLORIDE
     Indication: DEMENTIA
     Dosage: 180 MG/ 10 ML
     Route: 065
  5. ACTONEL [Concomitant]
     Active Substance: RISEDRONATE SODIUM
     Indication: OSTEOPOROSIS
     Dosage: 35 MG/ WEEK
     Route: 065
     Dates: start: 2004
  6. DEANOL [Concomitant]
     Active Substance: DEANOL
     Indication: DEMENTIA
     Dosage: 230 MG/ 10 ML
     Route: 065
  7. RISIDON [Concomitant]
     Active Substance: METFORMIN HYDROCHLORIDE
     Indication: DIABETES MELLITUS
     Dosage: 1 G
     Route: 065
     Dates: start: 2004
  8. TEVETEN [Suspect]
     Active Substance: EPROSARTAN MESYLATE
     Indication: HYPERTENSION
     Dosage: 1 DF, 1D
     Route: 048
     Dates: start: 200506, end: 20050731
  9. COVERSYL                           /00790702/ [Concomitant]
     Active Substance: PERINDOPRIL
     Indication: HYPERTENSION
     Dosage: 5 MG DAILY
     Route: 065
     Dates: start: 2004

REACTIONS (6)
  - Rash pustular [Recovered/Resolved]
  - Macule [Recovered/Resolved]
  - Toxic skin eruption [Recovered/Resolved]
  - Pruritus [Recovered/Resolved]
  - Erythema [Recovered/Resolved]
  - Rash maculo-papular [Recovered/Resolved]

NARRATIVE: CASE EVENT DATE: 20050728
